FAERS Safety Report 6497089-5 (Version None)
Quarter: 2009Q4

REPORT INFORMATION
  Report Type: 
  Country: None (occurrence: None)
  Receive Date: 20091215
  Receipt Date: 20090302
  Transmission Date: 20100525
  Serious: No
  Sender: FDA-Public Use
  Company Number: A0771144A

PATIENT
  Age: 65 Year
  Sex: Male

DRUGS (5)
  1. AVODART [Suspect]
     Indication: BENIGN PROSTATIC HYPERPLASIA
     Dosage: .5MG PER DAY
     Route: 048
     Dates: start: 20081101
  2. FLOMAX [Concomitant]
  3. WELCHOL [Concomitant]
  4. VITAMIN TAB [Concomitant]
  5. NASONEX [Concomitant]

REACTIONS (3)
  - ANORECTAL DISCOMFORT [None]
  - BLADDER DISCOMFORT [None]
  - PREHYPERTENSION [None]
